FAERS Safety Report 11088517 (Version 1)
Quarter: 2015Q2

REPORT INFORMATION
  Report Type: Spontaneous
  Country: US (occurrence: US)
  Receive Date: 20150504
  Receipt Date: 20150504
  Transmission Date: 20150821
  Serious: No
  Sender: FDA-Public Use
  Company Number: US-TARO-2014TAR00289

PATIENT
  Age: 66 Year
  Sex: Male
  Weight: 84.81 kg

DRUGS (5)
  1. ACTIVE 50 PLUS MULTIVITAMIN [Concomitant]
     Dosage: UNK, 1X/DAY
  2. ETODOLAC TABLETS 500 MG [Suspect]
     Active Substance: ETODOLAC
     Indication: INTERVERTEBRAL DISC DEGENERATION
     Dosage: 500 MG, AS NEEDED
     Route: 048
     Dates: start: 2012, end: 201402
  3. ETODOLAC TABLETS 500 MG [Suspect]
     Active Substance: ETODOLAC
     Indication: BACK PAIN
     Dosage: 1000 MG, 1X/DAY
     Route: 048
     Dates: start: 2012, end: 201402
  4. UNSPECIFIED PROBIOTIC [Concomitant]
     Indication: BACK PAIN
     Dosage: UNK, 1X/DAY
  5. UNSPECIFIED PROBIOTIC [Concomitant]
     Indication: INTERVERTEBRAL DISC DEGENERATION

REACTIONS (6)
  - Psoriasis [Recovered/Resolved]
  - Dyspepsia [Recovered/Resolved]
  - Eyelid margin crusting [Recovered/Resolved]
  - Ocular hyperaemia [Recovered/Resolved]
  - Product counterfeit [None]
  - Abdominal distension [Recovered/Resolved]

NARRATIVE: CASE EVENT DATE: 201401
